FAERS Safety Report 11774205 (Version 4)
Quarter: 2016Q1

REPORT INFORMATION
  Report Type: Spontaneous
  Country: US (occurrence: US)
  Receive Date: 20151124
  Receipt Date: 20160216
  Transmission Date: 20160525
  Serious: Yes (Other)
  Sender: FDA-Public Use
  Company Number: ALCN2015US007336

PATIENT
  Age: 54 Year
  Sex: Male

DRUGS (2)
  1. BETADINE [Suspect]
     Active Substance: POVIDONE-IODINE
     Indication: PREOPERATIVE CARE
     Dosage: UNK UNK, ONCE/SINGLE
     Route: 047
     Dates: start: 20151116, end: 20151116
  2. BSS PLUS [Suspect]
     Active Substance: CALCIUM CHLORIDE\DEXTROSE\MAGNESIUM CHLORIDE\OXIGLUTATIONE\POTASSIUM CHLORIDE\SODIUM BICARBONATE\SODIUM CHLORIDE\SODIUM PHOSPHATE\SODIUM PHOSPHATE, DIBASIC
     Indication: GLAUCOMA SURGERY
     Dosage: UNK UNK, ONCE/SINGLE
     Route: 031
     Dates: start: 20151116, end: 20151116

REACTIONS (3)
  - Hypopyon [Not Recovered/Not Resolved]
  - Intraocular pressure increased [Unknown]
  - Endophthalmitis [Not Recovered/Not Resolved]

NARRATIVE: CASE EVENT DATE: 20151118
